FAERS Safety Report 5078059-0 (Version None)
Quarter: 2006Q3

REPORT INFORMATION
  Report Type: 
  Country: None (occurrence: None)
  Receive Date: 20060808
  Receipt Date: 20060731
  Transmission Date: 20061208
  Serious: Yes (Hospitalization)
  Sender: FDA-Public Use
  Company Number: 2006094739

PATIENT
  Age: 21 Year
  Sex: Female

DRUGS (7)
  1. ATARAX [Suspect]
     Indication: DRUG USE FOR UNKNOWN INDICATION
     Dosage: (1 IN 1 TOTAL), ORAL
     Route: 048
     Dates: start: 20060419, end: 20060419
  2. DIAZEPAM [Suspect]
     Indication: DRUG USE FOR UNKNOWN INDICATION
     Dosage: (1 IN 1 TOTAL), ORAL
     Route: 048
     Dates: start: 20060419, end: 20060419
  3. TREO COMP (ACETYLSALICYLIC ACID, CAFFEINE, CODEINE) [Suspect]
     Indication: DRUG USE FOR UNKNOWN INDICATION
     Dosage: (1 IN 1 TOTAL), ORAL
     Route: 048
     Dates: start: 20060419, end: 20060419
  4. IBUPROFEN [Suspect]
     Indication: DRUG USE FOR UNKNOWN INDICATION
     Dosage: (1 IN 1 D), ORAL
     Route: 048
     Dates: start: 20060419, end: 20060419
  5. FLUOXETINE [Suspect]
     Indication: DRUG USE FOR UNKNOWN INDICATION
     Dosage: (1 IN 1 TOTAL), ORAL
     Route: 048
     Dates: start: 20060419, end: 20060419
  6. ALCOHOL (ETHANOL) [Concomitant]
  7. ALL OTHER THERAPEUTIC PRODUCTS (ALL OTHER THERAPEUTIC PRODUCTS) [Concomitant]

REACTIONS (4)
  - ALCOHOL USE [None]
  - DRUG TOXICITY [None]
  - MYDRIASIS [None]
  - VOMITING [None]
